FAERS Safety Report 19854912 (Version 1)
Quarter: 2021Q3

REPORT INFORMATION
  Report Type: Spontaneous
  Country: FR (occurrence: FR)
  Receive Date: 20210920
  Receipt Date: 20210920
  Transmission Date: 20211014
  Serious: Yes (Disabling)
  Sender: FDA-Public Use
  Company Number: FR-GLAXOSMITHKLINE-FRCH2021064254

PATIENT
  Age: 32 Year
  Sex: Male
  Weight: 93 kg

DRUGS (3)
  1. IBUPROFENE [Suspect]
     Active Substance: IBUPROFEN
     Indication: MALAISE
     Dosage: 3 PAR JOUR
     Route: 048
     Dates: start: 20210619, end: 20210625
  2. COMIRNATY [Suspect]
     Active Substance: TOZINAMERAN
     Indication: COVID-19 IMMUNISATION
     Dosage: D2
     Route: 030
     Dates: start: 20210530, end: 20210530
  3. IBUPROFENE [Suspect]
     Active Substance: IBUPROFEN
     Dosage: 1 PAR JOUR
     Route: 048
     Dates: start: 20210705, end: 20210710

REACTIONS (3)
  - Fatigue [Not Recovered/Not Resolved]
  - Transaminases increased [Recovering/Resolving]
  - Abdominal pain upper [Recovering/Resolving]
